FAERS Safety Report 21316076 (Version 3)
Quarter: 2022Q4

REPORT INFORMATION
  Report Type: Report from Study
  Country: US (occurrence: US)
  Receive Date: 20220910
  Receipt Date: 20221104
  Transmission Date: 20230113
  Serious: Yes (Life-Threatening, Hospitalization, Other)
  Sender: FDA-Public Use
  Company Number: US-NOVARTISPH-NVSC2022US203884

PATIENT
  Age: 72 Year
  Sex: Male

DRUGS (3)
  1. ENTRESTO [Suspect]
     Active Substance: SACUBITRIL\VALSARTAN
     Indication: Cardiac failure
     Dosage: 1 DOSAGE FORM, BID (49/51 MG)
     Route: 048
     Dates: start: 202202
  2. ENTRESTO [Suspect]
     Active Substance: SACUBITRIL\VALSARTAN
     Dosage: 1 DOSAGE FORM, BID (24/26 MG)
     Route: 048
  3. LENVIMA [Suspect]
     Active Substance: LENVATINIB
     Indication: Thyroid cancer
     Dosage: UNK
     Route: 065

REACTIONS (11)
  - Thyroid cancer stage IV [Unknown]
  - Atrioventricular block [Recovered/Resolved]
  - Metastases to lung [Unknown]
  - Pulmonary oedema [Recovered/Resolved]
  - Weight increased [Recovering/Resolving]
  - Heart rate decreased [Recovered/Resolved]
  - Pollakiuria [Unknown]
  - Weight fluctuation [Recovering/Resolving]
  - Lymphadenopathy [Recovering/Resolving]
  - Hypotension [Recovered/Resolved]
  - Cough [Not Recovered/Not Resolved]

NARRATIVE: CASE EVENT DATE: 20220301
